FAERS Safety Report 7270183-7 (Version None)
Quarter: 2011Q1

REPORT INFORMATION
  Report Type: 
  Country: None (occurrence: None)
  Receive Date: 20110202
  Receipt Date: 20110120
  Transmission Date: 20110831
  Serious: Yes (Hospitalization, Other)
  Sender: FDA-Public Use
  Company Number: US-ELI_LILLY_AND_COMPANY-US201101005635

PATIENT
  Sex: Female

DRUGS (6)
  1. ZYPREXA ZYDIS [Suspect]
     Indication: SCHIZOPHRENIA
     Dosage: 10 MG, 3/D
  2. CLINDAMYCIN [Concomitant]
  3. BUSPIRONE [Concomitant]
  4. LACTULOSE [Concomitant]
  5. ZYPREXA RELPREVV [Suspect]
     Indication: SCHIZOPHRENIA
     Dosage: 210 MG, MONTHLY (1/M)
  6. MAGNESIUM [Concomitant]

REACTIONS (2)
  - HOSPITALISATION [None]
  - OVERDOSE [None]
